FAERS Safety Report 5442906-0 (Version None)
Quarter: 2007Q3

REPORT INFORMATION
  Report Type: 
  Country: None (occurrence: None)
  Receive Date: 20070830
  Receipt Date: 20070815
  Transmission Date: 20080115
  Serious: Yes (Hospitalization, Other)
  Sender: FDA-Public Use
  Company Number: 2007BI015486

PATIENT
  Age: 52 Year
  Sex: Female
  Weight: 85 kg

DRUGS (3)
  1. AVONEX [Suspect]
     Indication: MULTIPLE SCLEROSIS
     Dosage: 30 UG;QW;IM
     Route: 030
     Dates: start: 20030601
  2. FENOFIBRATE [Concomitant]
  3. CITALOPRAM HYDROBROMIDE [Concomitant]

REACTIONS (6)
  - BREAST CANCER FEMALE [None]
  - BREAST CANCER STAGE II [None]
  - CHONDROPATHY [None]
  - OESTROGEN RECEPTOR ASSAY POSITIVE [None]
  - OSTEOCHONDROSIS [None]
  - PROGESTERONE RECEPTOR ASSAY POSITIVE [None]
